FAERS Safety Report 5095520-3 (Version None)
Quarter: 2006Q3

REPORT INFORMATION
  Report Type: 
  Country: None (occurrence: None)
  Receive Date: 20060831
  Receipt Date: 20060831
  Transmission Date: 20061208
  Serious: Yes (Hospitalization)
  Sender: FDA-Public Use
  Company Number: None

PATIENT
  Age: 90 Year
  Sex: Female
  Weight: 60 kg

DRUGS (14)
  1. ALEVE (CAPLET) [Suspect]
     Indication: OSTEOARTHRITIS
     Dosage: PE 250 MG? BID   3-4 YEARS
  2. ASPIRIN [Suspect]
     Dosage: 325 MG 2 X WK [CHRONIC]
  3. IBUPROFEN [Suspect]
     Indication: PAIN
     Dosage: 2X WK [CHRONIC]
  4. ACTONEL [Suspect]
     Indication: OSTEOPOROSIS
     Dosage: 35 MG Q WK [ CHRONIC]
  5. ALBUTEROL [Concomitant]
  6. LASIX [Concomitant]
  7. NORVASC [Concomitant]
  8. FLOVENT [Concomitant]
  9. ALLOPURINOL [Concomitant]
  10. SYNTHROID [Concomitant]
  11. K-DUR 10 [Concomitant]
  12. OSCAL [Concomitant]
  13. GAS-X [Concomitant]
  14. NITROSTAT [Concomitant]

REACTIONS (7)
  - ABDOMINAL DISTENSION [None]
  - ABDOMINAL PAIN [None]
  - DIZZINESS [None]
  - DUODENAL ULCER [None]
  - GASTRIC ULCER [None]
  - MELAENA [None]
  - TACHYCARDIA [None]
